FAERS Safety Report 6891256-4 (Version None)
Quarter: 2010Q3

REPORT INFORMATION
  Report Type: 
  Country: None (occurrence: None)
  Receive Date: 20100731
  Receipt Date: 20090715
  Transmission Date: 20110219
  Serious: No
  Sender: FDA-Public Use
  Company Number: US-PFIZER INC-2009240859

PATIENT
  Age: 57 Year
  Sex: Male

DRUGS (2)
  1. LIPITOR [Suspect]
     Indication: BLOOD CHOLESTEROL INCREASED
     Dosage: 10 MG, 1X/DAY
     Route: 048
  2. ALDARA [Suspect]
     Indication: PRECANCEROUS CELLS PRESENT
     Dosage: TWO TIMES A WEEK
     Route: 061
     Dates: start: 20090201

REACTIONS (1)
  - WHITE BLOOD CELL COUNT DECREASED [None]
